FAERS Safety Report 17391256 (Version 1)
Quarter: 2020Q1

REPORT INFORMATION
  Report Type: Report from Study
  Country: US (occurrence: US)
  Receive Date: 20200207
  Receipt Date: 20200207
  Transmission Date: 20200409
  Serious: Yes (Hospitalization)
  Sender: FDA-Public Use
  Company Number: NVSC2020US031855

PATIENT
  Age: 48 Year
  Sex: Male

DRUGS (1)
  1. ENTRESTO [Suspect]
     Active Substance: SACUBITRIL\VALSARTAN
     Indication: CARDIAC FAILURE
     Dosage: 1 DF (49/51MG), BID
     Route: 048
     Dates: start: 201912

REACTIONS (5)
  - Dizziness [Recovering/Resolving]
  - Hot flush [Recovering/Resolving]
  - Blood pressure increased [Recovering/Resolving]
  - Influenza [Recovering/Resolving]
  - Fluid retention [Recovering/Resolving]

NARRATIVE: CASE EVENT DATE: 20200127
